FAERS Safety Report 11610997 (Version 1)
Quarter: 2015Q4

REPORT INFORMATION
  Report Type: Spontaneous
  Country: US (occurrence: US)
  Receive Date: 20151008
  Receipt Date: 20151008
  Transmission Date: 20160304
  Serious: No
  Sender: FDA-Public Use
  Company Number: US-PFIZER INC-2015329463

PATIENT
  Age: 59 Year
  Sex: Female

DRUGS (1)
  1. BOSULIF [Suspect]
     Active Substance: BOSUTINIB MONOHYDRATE
     Indication: CHRONIC MYELOID LEUKAEMIA
     Dosage: 500 MG, 1X/DAY (TAKE 5 TABLETS (500 MG) BY MOUTH ONE TIME EVERY DAY WITH FOOD)
     Route: 048
     Dates: start: 20140224

REACTIONS (1)
  - Diarrhoea [Not Recovered/Not Resolved]
